FAERS Safety Report 25021449 (Version 2)
Quarter: 2025Q1

REPORT INFORMATION
  Report Type: Report from Study
  Country: US (occurrence: US)
  Receive Date: 20250228
  Receipt Date: 20250326
  Transmission Date: 20250409
  Serious: Yes (Disabling, Other)
  Sender: ROCHE
  Company Number: US-ROCHE-10000212311

PATIENT
  Age: 41 Year
  Sex: Female
  Weight: 63.5 kg

DRUGS (3)
  1. RITUXAN [Suspect]
     Active Substance: RITUXIMAB
     Indication: Sarcoidosis
     Dosage: LAST INFUSION JUN-2024??1G IV X 2 DOSES 2 WEEKS  Q 6 MONTH
     Route: 042
     Dates: start: 2023, end: 20250108
  2. REMICADE [Suspect]
     Active Substance: INFLIXIMAB
     Indication: Sarcoidosis
     Route: 042
     Dates: start: 2024
  3. ASPIRIN [Concomitant]
     Active Substance: ASPIRIN

REACTIONS (6)
  - Visual impairment [Unknown]
  - Pain [Unknown]
  - Off label use [Unknown]
  - Eye disorder [Not Recovered/Not Resolved]
  - Fatigue [Recovered/Resolved]
  - Urticaria [Not Recovered/Not Resolved]
